FAERS Safety Report 9518087 (Version 1)
Quarter: 2013Q3

REPORT INFORMATION
  Report Type: Spontaneous
  Country: US (occurrence: None)
  Receive Date: 20130910
  Receipt Date: 20130910
  Transmission Date: 20140515
  Serious: No
  Sender: FDA-Public Use
  Company Number: None

PATIENT
  Age: 63 Year
  Sex: Female
  Weight: 72.58 kg

DRUGS (1)
  1. ATORVASTATIN [Suspect]
     Indication: BLOOD CHOLESTEROL ABNORMAL
     Dosage: 1 PILL AT BEDTIME TAKEN BY MOUTH
     Dates: start: 20111219, end: 20120105

REACTIONS (5)
  - Pyrexia [None]
  - Decreased appetite [None]
  - Rash [None]
  - Chromaturia [None]
  - Blood pressure decreased [None]
